FAERS Safety Report 7751156-4 (Version None)
Quarter: 2011Q3

REPORT INFORMATION
  Report Type: 
  Country: None (occurrence: None)
  Receive Date: 20110914
  Receipt Date: 20110913
  Transmission Date: 20111222
  Serious: Yes (Other)
  Sender: FDA-Public Use
  Company Number: BR-ABBOTT-10P-020-0672303-00

PATIENT
  Sex: Female
  Weight: 68 kg

DRUGS (10)
  1. ALENDRONATE SODIUM [Concomitant]
     Indication: OSTEOPOROSIS
     Route: 048
     Dates: start: 20090101
  2. PREDNISONE [Concomitant]
     Indication: RHEUMATOID ARTHRITIS
     Route: 048
  3. METHOTREXATE [Concomitant]
     Indication: RHEUMATOID ARTHRITIS
     Route: 048
  4. GLUCOSAMINE [Concomitant]
     Indication: OSTEOARTHRITIS
     Route: 048
  5. LEVOTHYROXINE SODIUM [Concomitant]
     Indication: HYPOTHYROIDISM
     Route: 048
     Dates: start: 20080101
  6. SULFASALAZINE [Concomitant]
     Indication: RHEUMATOID ARTHRITIS
     Route: 048
  7. CALCIUM CARBONATE [Concomitant]
     Indication: OSTEOARTHRITIS
     Route: 048
  8. LEFLUNOMIDE [Concomitant]
     Indication: RHEUMATOID ARTHRITIS
     Route: 048
  9. ETANERCEPT [Concomitant]
     Indication: PRODUCT USED FOR UNKNOWN INDICATION
     Dates: start: 20100201
  10. HUMIRA [Suspect]
     Indication: RHEUMATOID ARTHRITIS
     Route: 058
     Dates: start: 20060920, end: 20100119

REACTIONS (12)
  - POST PROCEDURAL SWELLING [None]
  - POST PROCEDURAL COMPLICATION [None]
  - FALL [None]
  - HERNIA [None]
  - BASAL CELL CARCINOMA [None]
  - WRIST FRACTURE [None]
  - UPPER LIMB FRACTURE [None]
  - ANKLE FRACTURE [None]
  - PROCEDURAL PAIN [None]
  - LABYRINTHITIS [None]
  - HYPOTHYROIDISM [None]
  - DIZZINESS [None]
